FAERS Safety Report 24135357 (Version 1)
Quarter: 2024Q3

REPORT INFORMATION
  Report Type: Spontaneous
  Country: US (occurrence: US)
  Receive Date: 20240725
  Receipt Date: 20240725
  Transmission Date: 20241017
  Serious: No
  Sender: AUROBINDO
  Company Number: US-AUROBINDO-AUR-APL-2024-008101

PATIENT
  Sex: Female

DRUGS (1)
  1. ALPRAZOLAM [Suspect]
     Active Substance: ALPRAZOLAM
     Indication: Post-traumatic stress disorder
     Dosage: 2 MILLIGRAM
     Route: 065

REACTIONS (4)
  - Abdominal discomfort [Unknown]
  - Anxiety [Unknown]
  - Dizziness [Unknown]
  - Product substitution issue [Unknown]
